FAERS Safety Report 10028676 (Version 1)
Quarter: 2014Q1

REPORT INFORMATION
  Report Type: Spontaneous
  Country: US (occurrence: US)
  Receive Date: 20140321
  Receipt Date: 20140321
  Transmission Date: 20141002
  Serious: No
  Sender: FDA-Public Use
  Company Number: US-BAYER-2014-040046

PATIENT
  Age: 60 Year
  Sex: Male

DRUGS (4)
  1. GADAVIST [Suspect]
     Indication: NUCLEAR MAGNETIC RESONANCE IMAGING
     Dosage: 10 ML, ONCE
     Dates: start: 20140206, end: 20140206
  2. GADAVIST [Suspect]
     Indication: CELLULITIS
     Dosage: 10 ML, ONCE
     Route: 042
     Dates: start: 20140311, end: 20140311
  3. GADAVIST [Suspect]
     Indication: NUCLEAR MAGNETIC RESONANCE IMAGING
  4. GADAVIST [Suspect]
     Indication: CELLULITIS

REACTIONS (3)
  - Feeling hot [Recovered/Resolved]
  - Vomiting [None]
  - Vomiting [Recovered/Resolved]
